FAERS Safety Report 9811888 (Version 2)
Quarter: 2015Q4

REPORT INFORMATION
  Report Type: Spontaneous
  Country: US (occurrence: US)
  Receive Date: 20140110
  Receipt Date: 20151228
  Transmission Date: 20160305
  Serious: Yes (Other)
  Sender: FDA-Public Use
  Company Number: US-SANOFI-AVENTIS-2013SA068535

PATIENT
  Age: 49 Year

DRUGS (3)
  1. PLAVIX [Suspect]
     Active Substance: CLOPIDOGREL BISULFATE
     Indication: ACUTE CORONARY SYNDROME
     Route: 065
     Dates: start: 20080927, end: 20110925
  2. PLAVIX [Suspect]
     Active Substance: CLOPIDOGREL BISULFATE
     Indication: STENT PLACEMENT
     Route: 065
     Dates: start: 20080927, end: 20110925
  3. ASPIRIN. [Concomitant]
     Active Substance: ASPIRIN
     Dates: start: 2008, end: 2011

REACTIONS (2)
  - Thrombotic thrombocytopenic purpura [Unknown]
  - Thrombosis [Unknown]

NARRATIVE: CASE EVENT DATE: 20110925
